FAERS Safety Report 17136003 (Version 3)
Quarter: 2020Q1

REPORT INFORMATION
  Report Type: Spontaneous
  Country: US (occurrence: US)
  Receive Date: 20191210
  Receipt Date: 20200208
  Transmission Date: 20200409
  Serious: Yes (Hospitalization, Other)
  Sender: FDA-Public Use
  Company Number: US-UNITED THERAPEUTICS-UNT-2019-020369

PATIENT
  Age: 53 Year
  Sex: Female
  Weight: 108.84 kg

DRUGS (4)
  1. AMBRISENTAN [Concomitant]
     Active Substance: AMBRISENTAN
     Indication: PRODUCT USED FOR UNKNOWN INDICATION
     Dosage: UNK
     Route: 065
  2. TADALAFIL. [Concomitant]
     Active Substance: TADALAFIL
     Indication: PRODUCT USED FOR UNKNOWN INDICATION
     Dosage: UNK
     Route: 065
  3. REMODULIN [Suspect]
     Active Substance: TREPROSTINIL
     Indication: PULMONARY ARTERIAL HYPERTENSION
     Dosage: 0.019 ?G/KG, CONTINUING
     Route: 041
     Dates: start: 20190121
  4. REMODULIN [Suspect]
     Active Substance: TREPROSTINIL
     Dosage: 0.031 ?G/KG, CONTINUING
     Route: 041

REACTIONS (7)
  - Brain natriuretic peptide increased [Recovering/Resolving]
  - Hypoxia [Recovering/Resolving]
  - Ear pain [Recovering/Resolving]
  - Hypokalaemia [Recovering/Resolving]
  - Pneumonia [Recovered/Resolved]
  - Troponin increased [Recovering/Resolving]
  - Lung infiltration [Recovering/Resolving]

NARRATIVE: CASE EVENT DATE: 20191204
